FAERS Safety Report 8854873 (Version 2)
Quarter: 2012Q4

REPORT INFORMATION
  Report Type: 
  Country: US (occurrence: US)
  Receive Date: 20121023
  Receipt Date: 20121122
  Transmission Date: 20130627
  Serious: No
  Sender: FDA-Public Use
  Company Number: US-PFIZER INC-2012260518

PATIENT
  Age: 82 Year
  Sex: Female

DRUGS (1)
  1. LIDOCAINE HYDROCHLORIDE [Suspect]
     Dosage: UNK
     Route: 062

REACTIONS (2)
  - Paraesthesia [Unknown]
  - Drug ineffective [Unknown]
